FAERS Safety Report 25955634 (Version 1)
Quarter: 2025Q4

REPORT INFORMATION
  Report Type: Spontaneous
  Country: TW (occurrence: TW)
  Receive Date: 20251024
  Receipt Date: 20251024
  Transmission Date: 20260117
  Serious: Yes (Hospitalization)
  Sender: BOEHRINGER INGELHEIM
  Company Number: TW-BoehringerIngelheim-2025-BI-102274

PATIENT
  Age: 74 Year
  Sex: Female
  Weight: 46.9 kg

DRUGS (9)
  1. LINAGLIPTIN [Suspect]
     Active Substance: LINAGLIPTIN
     Indication: Type 2 diabetes mellitus
     Dates: start: 20250825, end: 20250921
  2. AMLODIPINE BESYLATE [Suspect]
     Active Substance: AMLODIPINE BESYLATE
     Indication: Hypertension
     Dosage: 1.0TAB
     Dates: start: 20250825, end: 20250921
  3. IRON POLYMALTOSE [Suspect]
     Active Substance: IRON POLYMALTOSE
     Indication: Mineral supplementation
     Dosage: 1.0TAB
     Dates: start: 20250825, end: 20250921
  4. LANSOPRAZOLE [Suspect]
     Active Substance: LANSOPRAZOLE
     Indication: Stress ulcer
     Dosage: 1.0TAB
     Dates: start: 20250825, end: 20250921
  5. ACETAMINOPHEN\TRAMADOL HYDROCHLORIDE [Suspect]
     Active Substance: ACETAMINOPHEN\TRAMADOL HYDROCHLORIDE
     Indication: Pain
     Dosage: 325.0MG/37.5MG
     Dates: start: 20250825, end: 20250901
  6. SPIRONOLACTONE [Suspect]
     Active Substance: SPIRONOLACTONE
     Indication: Hypertension
     Dosage: 1.0TAB
     Dates: start: 20250825, end: 20250921
  7. Atoty [Concomitant]
     Indication: Dyslipidaemia
     Dosage: 1.0TAB
     Dates: start: 20250823, end: 20250921
  8. ASPIRIN [Concomitant]
     Active Substance: ASPIRIN
     Indication: Thrombosis
     Dosage: 1.0CAP
     Dates: start: 20250823, end: 20250921
  9. Piozon [Concomitant]
     Indication: Type 2 diabetes mellitus
     Dates: start: 20250823, end: 20250921

REACTIONS (4)
  - SJS-TEN overlap [Recovering/Resolving]
  - Rash [Recovering/Resolving]
  - Skin erosion [Recovering/Resolving]
  - Lip erosion [Recovering/Resolving]

NARRATIVE: CASE EVENT DATE: 20250905
